FAERS Safety Report 6746388-8 (Version None)
Quarter: 2010Q2

REPORT INFORMATION
  Report Type: 
  Country: None (occurrence: None)
  Receive Date: 20100528
  Receipt Date: 20100519
  Transmission Date: 20101027
  Serious: Yes (Death)
  Sender: FDA-Public Use
  Company Number: KP-GENZYME-CERZ-1001297

PATIENT
  Sex: Female
  Weight: 46 kg

DRUGS (6)
  1. CEREZYME [Suspect]
     Indication: GAUCHER'S DISEASE
     Dosage: 40 U/KG, UNK
     Route: 042
     Dates: start: 19980401, end: 20100510
  2. ZONISAMIDE [Concomitant]
     Indication: CONVULSION
     Dosage: 100 MG, QD
     Dates: end: 20100510
  3. CLONAZEPAM [Concomitant]
     Indication: CONVULSION
     Dosage: 0.5 MG, TID
     Dates: end: 20100510
  4. VALPROIC ACID [Concomitant]
     Indication: CONVULSION
     Dosage: 300 MG, BID
     Dates: end: 20100510
  5. OXCARBAZEPINE [Concomitant]
     Indication: CONVULSION
     Dosage: 600 MG, BID
     Dates: end: 20100510
  6. LEVETIRACETAM [Concomitant]
     Indication: CONVULSION
     Dosage: 500 MG, BID
     Dates: end: 20100510

REACTIONS (1)
  - CONVULSION [None]
